FAERS Safety Report 6431727-8 (Version None)
Quarter: 2009Q4

REPORT INFORMATION
  Report Type: 
  Country: None (occurrence: None)
  Receive Date: 20091104
  Receipt Date: 20091026
  Transmission Date: 20100525
  Serious: Yes (Other)
  Sender: FDA-Public Use
  Company Number: 232419J09USA

PATIENT
  Age: 41 Year
  Sex: Female

DRUGS (5)
  1. REBIF [Suspect]
     Indication: MULTIPLE SCLEROSIS
     Dosage: 22 MCG, 1 IN 1 WEEKS, SUBCUTANEOUS
     Route: 058
     Dates: start: 20040101
  2. STEROIDS (CORTICOSTEROIDS) [Suspect]
     Dosage: NOT REPORTED, NOT REPORTED, NOT REPORTED
     Dates: start: 20040101, end: 20040101
  3. DILANTIN (PHENYTOIN/00017401/) [Concomitant]
  4. LORAZEPAM [Concomitant]
  5. TYLENOL [Concomitant]

REACTIONS (10)
  - ANAPHYLACTIC REACTION [None]
  - CONVULSION [None]
  - DEPRESSION [None]
  - DISEASE RECURRENCE [None]
  - DRUG HYPERSENSITIVITY [None]
  - DYSPNOEA [None]
  - FATIGUE [None]
  - MOVEMENT DISORDER [None]
  - NAUSEA [None]
  - VISION BLURRED [None]
